FAERS Safety Report 13020465 (Version 1)
Quarter: 2016Q4

REPORT INFORMATION
  Report Type: Spontaneous
  Country: US (occurrence: US)
  Receive Date: 20161212
  Receipt Date: 20161212
  Transmission Date: 20170207
  Serious: Yes (Congenital Anomaly)
  Sender: FDA-Public Use
  Company Number: US-LUNDBECK-DKLU2023601

PATIENT

DRUGS (1)
  1. ONFI [Suspect]
     Active Substance: CLOBAZAM
     Indication: FOETAL EXPOSURE TIMING UNSPECIFIED
     Route: 065

REACTIONS (3)
  - Foetal exposure during pregnancy [Unknown]
  - Cardiac septal defect [Unknown]
  - Posterior fossa syndrome [Unknown]
